FAERS Safety Report 6732993-1 (Version None)
Quarter: 2010Q2

REPORT INFORMATION
  Report Type: 
  Country: None (occurrence: None)
  Receive Date: 20100519
  Receipt Date: 20100513
  Transmission Date: 20101027
  Serious: Yes (Hospitalization, Other)
  Sender: FDA-Public Use
  Company Number: US-MERCK-0802USA01622

PATIENT
  Age: 70 Year
  Sex: Female
  Weight: 69 kg

DRUGS (3)
  1. FOSAMAX [Suspect]
     Indication: OSTEOPOROSIS
     Route: 048
     Dates: start: 20041124, end: 20061208
  2. FOSAMAX [Suspect]
     Indication: OSTEOPENIA
     Route: 048
     Dates: start: 20041124, end: 20061208
  3. FOSAMAX PLUS D [Suspect]
     Indication: OSTEOPOROSIS
     Route: 048
     Dates: start: 20041124, end: 20061208

REACTIONS (27)
  - ABDOMINAL DISCOMFORT [None]
  - ACTIVITIES OF DAILY LIVING IMPAIRED [None]
  - ARTHRALGIA [None]
  - ARTHRITIS [None]
  - BLOOD CHOLESTEROL INCREASED [None]
  - BREATH SOUNDS ABNORMAL [None]
  - CHEST PAIN [None]
  - CONCUSSION [None]
  - DENTAL FISTULA [None]
  - DIZZINESS POSTURAL [None]
  - DRUG HYPERSENSITIVITY [None]
  - FALL [None]
  - HEADACHE [None]
  - HYPERLIPIDAEMIA [None]
  - JOINT SPRAIN [None]
  - LOSS OF CONSCIOUSNESS [None]
  - MENISCUS LESION [None]
  - MUSCLE SPASMS [None]
  - OSTEOARTHRITIS [None]
  - OSTEONECROSIS OF JAW [None]
  - POST PROCEDURAL COMPLICATION [None]
  - SENSITIVITY OF TEETH [None]
  - SPINAL COMPRESSION FRACTURE [None]
  - SUPRAVENTRICULAR EXTRASYSTOLES [None]
  - TOOTH FRACTURE [None]
  - TRIGEMINAL NEURALGIA [None]
  - VEIN DISORDER [None]
